FAERS Safety Report 11115852 (Version 1)
Quarter: 2015Q2

REPORT INFORMATION
  Report Type: Spontaneous
  Country: US (occurrence: None)
  Receive Date: 20150514
  Receipt Date: 20150514
  Transmission Date: 20150821
  Serious: Yes (Other)
  Sender: FDA-Public Use
  Company Number: None

PATIENT
  Age: 61 Year
  Sex: Female

DRUGS (1)
  1. AFINITOR [Suspect]
     Active Substance: EVEROLIMUS
     Indication: NASOPHARYNGEAL CANCER
     Route: 048
     Dates: start: 20150430

REACTIONS (1)
  - Stomatitis [None]

NARRATIVE: CASE EVENT DATE: 20150430
